FAERS Safety Report 5162430-2 (Version None)
Quarter: 2006Q4

REPORT INFORMATION
  Report Type: 
  Country: None (occurrence: None)
  Receive Date: 20061128
  Receipt Date: 20061128
  Transmission Date: 20070319
  Serious: Yes (Hospitalization)
  Sender: FDA-Public Use
  Company Number: None

PATIENT
  Age: 61 Year
  Sex: Male
  Weight: 76 kg

DRUGS (6)
  1. NAFCILLIN SODIUM [Suspect]
     Indication: ABSCESS
     Dosage: 1GM FREQ? IV
     Route: 042
     Dates: start: 20060331, end: 20060424
  2. NAFCILLIN SODIUM [Suspect]
     Indication: ARTHRITIS BACTERIAL
     Dosage: 1GM FREQ? IV
     Route: 042
     Dates: start: 20060331, end: 20060424
  3. PERCOCET [Concomitant]
  4. DOCUSATE [Concomitant]
  5. LOPID [Concomitant]
  6. SENNA [Concomitant]

REACTIONS (1)
  - LEUKOPENIA [None]
